FAERS Safety Report 24719703 (Version 1)
Quarter: 2024Q4

REPORT INFORMATION
  Report Type: Report from Study
  Country: ZA (occurrence: ZA)
  Receive Date: 20241211
  Receipt Date: 20241211
  Transmission Date: 20250115
  Serious: Yes (Hospitalization, Other)
  Sender: ALEXION PHARMACEUTICALS
  Company Number: ZA-ASTRAZENECA-202412SSA005061ZA

PATIENT
  Age: 44 Year

DRUGS (23)
  1. DAPAGLIFLOZIN [Suspect]
     Active Substance: DAPAGLIFLOZIN
     Indication: Diabetes mellitus
     Dosage: 10 MILLIGRAM, QD
  2. DAPAGLIFLOZIN [Suspect]
     Active Substance: DAPAGLIFLOZIN
     Dosage: 10 MILLIGRAM, QD
     Route: 048
  3. DAPAGLIFLOZIN [Suspect]
     Active Substance: DAPAGLIFLOZIN
     Dosage: 10 MILLIGRAM, QD
  4. DAPAGLIFLOZIN [Suspect]
     Active Substance: DAPAGLIFLOZIN
     Dosage: 10 MILLIGRAM, QD
     Route: 048
  5. CARVEDILOL [Concomitant]
     Active Substance: CARVEDILOL
     Indication: Hypertension
     Dosage: 12.5 MILLIGRAM, BID
     Route: 048
  6. CARVEDILOL [Concomitant]
     Active Substance: CARVEDILOL
     Dosage: 12.5 MILLIGRAM, BID
  7. AMIODARONE [Concomitant]
     Active Substance: AMIODARONE
     Indication: Arrhythmia
     Dosage: 200 MILLIGRAM, BID
     Route: 048
  8. AMIODARONE [Concomitant]
     Active Substance: AMIODARONE
     Dosage: 200 MILLIGRAM, BID
  9. SPIRACTIN [Concomitant]
     Indication: Hypertension
     Dosage: 25 MILLIGRAM, BID
  10. SPIRACTIN [Concomitant]
     Dosage: 25 MILLIGRAM, BID
     Route: 048
  11. SPIRACTIN [Concomitant]
     Dosage: 25 MILLIGRAM, BID
  12. SPIRACTIN [Concomitant]
     Dosage: 25 MILLIGRAM, BID
     Route: 048
  13. RIVAROXABAN [Concomitant]
     Active Substance: RIVAROXABAN
     Indication: Thrombosis
     Dosage: 20 MILLIGRAM, QD
  14. ENTIRO [Concomitant]
     Route: 048
  15. ENTIRO [Concomitant]
  16. Cloxin [Concomitant]
     Dosage: 500 MILLIGRAM, QID
     Route: 048
  17. Cloxin [Concomitant]
     Dosage: 500 MILLIGRAM, QID
  18. Sandoz co amoxyclav [Concomitant]
     Dosage: 1000 MILLIGRAM, BID
     Route: 048
  19. Sandoz co amoxyclav [Concomitant]
     Dosage: 1000 MILLIGRAM, BID
  20. FUROSEMIDE [Concomitant]
     Active Substance: FUROSEMIDE
     Indication: Hypertension
     Dosage: 40 MILLIGRAM, 5 TIMES A DAY
     Route: 048
  21. FUROSEMIDE [Concomitant]
     Active Substance: FUROSEMIDE
     Dosage: 40 MILLIGRAM, 5 TIMES A DAY
  22. IVABRADINE HYDROCHLORIDE [Concomitant]
     Active Substance: IVABRADINE HYDROCHLORIDE
     Indication: Hypertension
     Dosage: 5 MILLIGRAM, BID
     Route: 048
  23. IVABRADINE HYDROCHLORIDE [Concomitant]
     Active Substance: IVABRADINE HYDROCHLORIDE
     Dosage: 5 MILLIGRAM, BID

REACTIONS (2)
  - Cardiac failure [Unknown]
  - Lung disorder [Unknown]
